FAERS Safety Report 23234447 (Version 2)
Quarter: 2023Q4

REPORT INFORMATION
  Report Type: Spontaneous
  Country: US (occurrence: US)
  Receive Date: 20231128
  Receipt Date: 20231201
  Transmission Date: 20240110
  Serious: Yes (Hospitalization, Other)
  Sender: FDA-Public Use
  Company Number: US-BRISTOL-MYERS SQUIBB COMPANY-2023-169419

PATIENT
  Age: 46 Year
  Sex: Male

DRUGS (2)
  1. TRIAMCINOLONE ACETONIDE [Interacting]
     Active Substance: TRIAMCINOLONE ACETONIDE
     Indication: Arthralgia
     Route: 014
  2. ITRACONAZOLE [Interacting]
     Active Substance: ITRACONAZOLE
     Indication: Histoplasmosis

REACTIONS (3)
  - Secondary adrenocortical insufficiency [Recovering/Resolving]
  - Hypothalamic pituitary adrenal axis suppression [Recovered/Resolved]
  - Drug interaction [Recovered/Resolved]
